FAERS Safety Report 10096152 (Version 1)
Quarter: 2014Q2

REPORT INFORMATION
  Report Type: Spontaneous
  Country: GB (occurrence: GB)
  Receive Date: 20140422
  Receipt Date: 20140422
  Transmission Date: 20141212
  Serious: Yes (Death)
  Sender: FDA-Public Use
  Company Number: GB-BRISTOL-MYERS SQUIBB COMPANY-20634580

PATIENT
  Age: 41 Year
  Sex: Male
  Weight: 97 kg

DRUGS (3)
  1. ARIPIPRAZOLE [Suspect]
     Indication: SCHIZOPHRENIA, PARANOID TYPE
     Route: 048
     Dates: start: 20110718, end: 20140102
  2. PROPRANOLOL [Concomitant]
  3. VENLAFAXINE HCL [Concomitant]

REACTIONS (1)
  - Acute lymphocytic leukaemia [Fatal]
